FAERS Safety Report 7384462-6 (Version None)
Quarter: 2011Q1

REPORT INFORMATION
  Report Type: 
  Country: None (occurrence: None)
  Receive Date: 20110330
  Receipt Date: 20110317
  Transmission Date: 20110831
  Serious: Yes (Hospitalization)
  Sender: FDA-Public Use
  Company Number: FR-AMGEN-FRANI2011010302

PATIENT
  Age: 83 Year
  Sex: Male

DRUGS (4)
  1. DIAMICRON [Concomitant]
     Dosage: UNK UNK, QD
  2. ENDOXAN [Concomitant]
     Dosage: 150 MG, QD
     Route: 048
     Dates: start: 20100806, end: 20100915
  3. LASIX [Concomitant]
  4. ROMIPLOSTIM [Suspect]
     Indication: IDIOPATHIC THROMBOCYTOPENIC PURPURA
     Dosage: UNK
     Route: 042
     Dates: start: 20100122

REACTIONS (2)
  - DEEP VEIN THROMBOSIS [None]
  - PULMONARY EMBOLISM [None]
